FAERS Safety Report 14319330 (Version 1)
Quarter: 2017Q4

REPORT INFORMATION
  Report Type: Spontaneous
  Country: ES (occurrence: ES)
  Receive Date: 20171222
  Receipt Date: 20171222
  Transmission Date: 20180321
  Serious: Yes (Other)
  Sender: FDA-Public Use
  Company Number: ES-RARE DISEASE THERAPEUTICS, INC.-2037675

PATIENT
  Age: 4 Year
  Sex: Male

DRUGS (12)
  1. ZOVIRAX [Concomitant]
     Active Substance: ACYCLOVIR
  2. MESNA. [Concomitant]
     Active Substance: MESNA
     Dates: start: 20170705, end: 20170705
  3. ZOVIRAX [Concomitant]
     Active Substance: ACYCLOVIR
     Dates: start: 20170523
  4. CITARABINA (CYTARABINE) [Suspect]
     Active Substance: CYTARABINE
     Route: 042
     Dates: start: 20170707, end: 20170717
  5. DAPTOMYCIN. [Concomitant]
     Active Substance: DAPTOMYCIN
     Dates: start: 20170704, end: 20170718
  6. AMFOTERICINA B [Concomitant]
     Dates: start: 20170523, end: 20170710
  7. SEPTRIN PAEDIATRIC [Concomitant]
  8. VANCOMICINA [Concomitant]
     Active Substance: VANCOMYCIN
     Dates: start: 20170626, end: 20170706
  9. PURIXAN [Suspect]
     Active Substance: MERCAPTOPURINE
     Indication: ACUTE LYMPHOCYTIC LEUKAEMIA
     Route: 048
     Dates: start: 20170708, end: 20170721
  10. CICLOFOSFAMIDA [Suspect]
     Active Substance: CYCLOPHOSPHAMIDE
     Route: 042
     Dates: start: 20170705, end: 20170705
  11. SEPTRIN PAEDIATRIC [Concomitant]
     Dates: start: 20170523
  12. FLUCONAZOLE. [Concomitant]
     Active Substance: FLUCONAZOLE
     Dates: start: 20170523, end: 20170710

REACTIONS (3)
  - Petechiae [Recovered/Resolved]
  - Thrombocytopenia [Recovered/Resolved]
  - Anaemia [Recovered/Resolved]

NARRATIVE: CASE EVENT DATE: 20170717
